FAERS Safety Report 21358268 (Version 1)
Quarter: 2022Q3

REPORT INFORMATION
  Report Type: Spontaneous
  Country: US (occurrence: US)
  Receive Date: 20220921
  Receipt Date: 20220921
  Transmission Date: 20221026
  Serious: No
  Sender: FDA-Public Use
  Company Number: US-KVK-TECH, INC-20220100009

PATIENT

DRUGS (5)
  1. LOMAIRA [Suspect]
     Active Substance: PHENTERMINE HYDROCHLORIDE
     Indication: Weight decreased
     Dosage: 8 MILLIGRAM, QD
     Route: 048
     Dates: start: 20220115, end: 202201
  2. LOMAIRA [Suspect]
     Active Substance: PHENTERMINE HYDROCHLORIDE
     Dosage: 8 MILLIGRAM, QD
     Route: 048
     Dates: start: 20220120, end: 202201
  3. LOMAIRA [Suspect]
     Active Substance: PHENTERMINE HYDROCHLORIDE
     Dosage: 4 MILLIGRAM, HALF A TABLET
     Route: 048
     Dates: start: 20220121
  4. ASCORBIC ACID [Concomitant]
     Active Substance: ASCORBIC ACID
     Indication: Product used for unknown indication
  5. IRON [Concomitant]
     Active Substance: IRON
     Indication: Product used for unknown indication

REACTIONS (6)
  - Headache [Recovered/Resolved]
  - Asthenia [Unknown]
  - Blood pressure increased [Unknown]
  - Dysphagia [Unknown]
  - Intentional dose omission [Unknown]
  - Wrong technique in product usage process [Unknown]

NARRATIVE: CASE EVENT DATE: 20220101
